FAERS Safety Report 16190477 (Version 1)
Quarter: 2019Q2

REPORT INFORMATION
  Report Type: Spontaneous
  Country: US (occurrence: US)
  Receive Date: 20190412
  Receipt Date: 20190412
  Transmission Date: 20190711
  Serious: No
  Sender: FDA-Public Use
  Company Number: US-PFIZER INC-2019150846

PATIENT
  Sex: Female

DRUGS (1)
  1. ZOLOFT [Suspect]
     Active Substance: SERTRALINE HYDROCHLORIDE
     Indication: HORMONE LEVEL ABNORMAL
     Dosage: 50 MG, UNK

REACTIONS (4)
  - Drug ineffective for unapproved indication [Unknown]
  - Dizziness [Unknown]
  - Irritability [Unknown]
  - Feeling abnormal [Unknown]
